FAERS Safety Report 8386226-3 (Version None)
Quarter: 2012Q2

REPORT INFORMATION
  Report Type: 
  Country: None (occurrence: None)
  Receive Date: 20120525
  Receipt Date: 20120521
  Transmission Date: 20120825
  Serious: Yes (Hospitalization)
  Sender: FDA-Public Use
  Company Number: BR-PFIZER INC-2012123472

PATIENT
  Age: 78 Year
  Sex: Female

DRUGS (7)
  1. LOSARTAN POTASSIUM [Concomitant]
     Dosage: UNK
  2. LASIX [Concomitant]
     Indication: DIURETIC THERAPY
     Dosage: UNK
  3. SIMVASTATIN [Concomitant]
     Indication: BLOOD CHOLESTEROL
     Dosage: UNK
  4. ALDACTONE [Concomitant]
     Dosage: UNK
  5. WARFARIN SODIUM [Concomitant]
     Indication: COAGULOPATHY
     Dosage: 2.5 MG, 1X/DAY
  6. LYRICA [Suspect]
     Indication: SPINAL PAIN
     Dosage: 75 MG, 2X/DAY
     Route: 048
     Dates: start: 20120514, end: 20120516
  7. CARVEDILOL [Concomitant]
     Indication: ARRHYTHMIA
     Dosage: UNK

REACTIONS (8)
  - PAIN IN EXTREMITY [None]
  - DYSPNOEA [None]
  - SEDATION [None]
  - ASTHENIA [None]
  - DEPRESSED MOOD [None]
  - BLOOD PRESSURE DECREASED [None]
  - COAGULOPATHY [None]
  - INTERNATIONAL NORMALISED RATIO INCREASED [None]
